FAERS Safety Report 8132685-0 (Version None)
Quarter: 2012Q1

REPORT INFORMATION
  Report Type: 
  Country: None (occurrence: None)
  Receive Date: 20120213
  Receipt Date: 20120206
  Transmission Date: 20120608
  Serious: No
  Sender: FDA-Public Use
  Company Number: US-PFIZER INC-2012019388

PATIENT
  Sex: Female

DRUGS (1)
  1. ALPRAZOLAM [Suspect]
     Dosage: 0.25MG TID TO QID FOR 14 YEARS

REACTIONS (3)
  - WITHDRAWAL SYNDROME [None]
  - NAUSEA [None]
  - HYPERHIDROSIS [None]
